FAERS Safety Report 5262244-9 (Version None)
Quarter: 2007Q1

REPORT INFORMATION
  Report Type: 
  Country: None (occurrence: None)
  Receive Date: 20070312
  Receipt Date: 20070227
  Transmission Date: 20070707
  Serious: Yes (Hospitalization)
  Sender: FDA-Public Use
  Company Number: FR-NOVOPROD-261188

PATIENT
  Age: 36 Year
  Sex: Male

DRUGS (5)
  1. ACTRAPID [Suspect]
     Dosage: 4 IU, UNK
     Dates: start: 20070201, end: 20070208
  2. LOVENOX [Suspect]
     Indication: VENOUS THROMBOSIS
     Dosage: .4 ML, UNK
     Route: 058
     Dates: start: 20070201, end: 20070206
  3. TRIFLUCAN [Suspect]
     Indication: CANDIDIASIS
     Dosage: 50 MG, UNK
     Route: 048
     Dates: start: 20070202, end: 20070205
  4. NOVORAPID [Concomitant]
     Route: 058
     Dates: start: 20070208
  5. LANTUS [Concomitant]
     Route: 058
     Dates: start: 20070208

REACTIONS (1)
  - HEPATITIS [None]
